FAERS Safety Report 20673651 (Version 1)
Quarter: 2022Q2

REPORT INFORMATION
  Report Type: Spontaneous
  Country: ES (occurrence: ES)
  Receive Date: 20220405
  Receipt Date: 20220405
  Transmission Date: 20220720
  Serious: Yes (Hospitalization, Other)
  Sender: FDA-Public Use
  Company Number: ES-NOVARTISPH-NVSC2022ES075927

PATIENT
  Age: 43 Year
  Sex: Female

DRUGS (4)
  1. CEFIXIME [Suspect]
     Active Substance: CEFIXIME
     Indication: Pyelonephritis acute
     Dosage: 400 MG, Q12H
     Route: 048
  2. DEXKETOPROFEN TROMETAMOL [Suspect]
     Active Substance: DEXKETOPROFEN TROMETAMOL
     Indication: Pyelonephritis acute
     Dosage: UNK
     Route: 042
  3. DEXKETOPROFEN TROMETAMOL [Suspect]
     Active Substance: DEXKETOPROFEN TROMETAMOL
     Dosage: 25 MG, Q8H
     Route: 048
  4. CEFTRIAXONE [Suspect]
     Active Substance: CEFTRIAXONE
     Indication: Product used for unknown indication
     Dosage: UNK
     Route: 042

REACTIONS (4)
  - Gait disturbance [Unknown]
  - Plantar fasciitis [Unknown]
  - Renal cortical necrosis [Not Recovered/Not Resolved]
  - Product use in unapproved indication [Unknown]
